FAERS Safety Report 5151536-X (Version None)
Quarter: 2006Q4

REPORT INFORMATION
  Report Type: 
  Country: None (occurrence: None)
  Receive Date: 20061115
  Receipt Date: 20051103
  Transmission Date: 20070319
  Serious: Yes (Hospitalization, Disabling)
  Sender: FDA-Public Use
  Company Number: US-ROCHE-423642

PATIENT
  Age: 46 Year
  Sex: Male
  Weight: 81.6 kg

DRUGS (6)
  1. ACCUTANE [Suspect]
     Dosage: INDICATION REPORTED AS CYSTIC ACNE AND FOLLICULITIS.
     Route: 048
     Dates: start: 19920915
  2. ACCUTANE [Suspect]
     Dosage: INDICATION REPORTED AS ACNE AND FOLLICULITIS. DOSAGE REGIMEN CHANGED TO 40MG TWICE WEEKLY AFTER THE+
     Route: 048
     Dates: start: 19970926
  3. ACCUTANE [Suspect]
     Dosage: INDICATION REPORTED AS CYSTIC ACNE. DOSAGE REGIMEN CHANGED TO 40MG AFTER ONE MONTH, THEN TO 40MG EV+
     Route: 048
     Dates: start: 20001127
  4. COZAAR [Concomitant]
     Indication: HYPERTENSION
  5. CLARITIN-D [Concomitant]
  6. FIORICET [Concomitant]

REACTIONS (12)
  - ANXIETY [None]
  - COLITIS [None]
  - COLITIS ULCERATIVE [None]
  - CROHN'S DISEASE [None]
  - DEPRESSION [None]
  - GASTROINTESTINAL DISORDER [None]
  - HYPERTENSION [None]
  - HYPOPHOSPHATAEMIA [None]
  - INFLAMMATORY BOWEL DISEASE [None]
  - INTESTINAL HAEMORRHAGE [None]
  - SINUS ARRHYTHMIA [None]
  - URINARY RETENTION [None]
